FAERS Safety Report 8105632-5 (Version None)
Quarter: 2012Q1

REPORT INFORMATION
  Report Type: 
  Country: None (occurrence: None)
  Receive Date: 20120201
  Receipt Date: 20120125
  Transmission Date: 20120608
  Serious: Yes (Death)
  Sender: FDA-Public Use
  Company Number: DE-ROCHE-1033912

PATIENT
  Age: 75 Year
  Sex: Male
  Weight: 68 kg

DRUGS (2)
  1. BENDAMUSTINE [Suspect]
     Indication: CHRONIC LYMPHOCYTIC LEUKAEMIA
     Route: 042
     Dates: start: 20110615, end: 20110920
  2. MABTHERA [Suspect]
     Indication: CHRONIC LYMPHOCYTIC LEUKAEMIA
     Route: 042
     Dates: start: 20110725, end: 20110919

REACTIONS (2)
  - MULTI-ORGAN FAILURE [None]
  - SEPSIS [None]
